FAERS Safety Report 7734968-2 (Version None)
Quarter: 2011Q3

REPORT INFORMATION
  Report Type: 
  Country: None (occurrence: None)
  Receive Date: 20110907
  Receipt Date: 20110830
  Transmission Date: 20111222
  Serious: Yes (Other)
  Sender: FDA-Public Use
  Company Number: PHHY2011US77971

PATIENT
  Age: 44 Year
  Sex: Male

DRUGS (1)
  1. COTRIM [Suspect]
     Indication: SKIN INFECTION
     Dosage: 160/800 MG, TWICE DAILY

REACTIONS (4)
  - PAROTID GLAND ENLARGEMENT [None]
  - PAROTITIS [None]
  - ERYTHEMA [None]
  - TENDERNESS [None]
